FAERS Safety Report 8223342-0 (Version None)
Quarter: 2012Q1

REPORT INFORMATION
  Report Type: 
  Country: None (occurrence: None)
  Receive Date: 20120314
  Receipt Date: 20120305
  Transmission Date: 20120608
  Serious: No
  Sender: FDA-Public Use
  Company Number: 2012SP005650

PATIENT
  Age: 45 Year
  Sex: Male

DRUGS (4)
  1. OLANAZAPINE [Concomitant]
  2. SYCREST (ASENAPINE) [Suspect]
     Indication: BIPOLAR DISORDER
     Dosage: 10 MG;BID;
     Dates: start: 20120114, end: 20120116
  3. LITHIUM CARBONATE [Concomitant]
  4. VALPROATE SODIUM [Concomitant]

REACTIONS (8)
  - HYPOAESTHESIA ORAL [None]
  - HYPOTENSION [None]
  - THOUGHT BLOCKING [None]
  - LARYNX IRRITATION [None]
  - FEELING ABNORMAL [None]
  - DRUG EFFECT INCREASED [None]
  - MENTAL IMPAIRMENT [None]
  - CONSTRICTED AFFECT [None]
